FAERS Safety Report 9301636 (Version 1)
Quarter: 2013Q2

REPORT INFORMATION
  Report Type: Spontaneous
  Country: US (occurrence: None)
  Receive Date: 20130520
  Receipt Date: 20130520
  Transmission Date: 20140414
  Serious: No
  Sender: FDA-Public Use
  Company Number: None

PATIENT
  Sex: Female
  Weight: 74.84 kg

DRUGS (1)
  1. MAXALT [Suspect]
     Indication: MIGRAINE

REACTIONS (2)
  - Product substitution issue [None]
  - Drug effect decreased [None]
